FAERS Safety Report 9062426 (Version 1)
Quarter: 2013Q1

REPORT INFORMATION
  Report Type: Spontaneous
  Country: US (occurrence: None)
  Receive Date: 20130122
  Receipt Date: 20130122
  Transmission Date: 20140127
  Serious: Yes (Death)
  Sender: FDA-Public Use
  Company Number: 1553153

PATIENT
  Age: 28 Year
  Sex: Female

DRUGS (7)
  1. DIAZEPAM [Suspect]
  2. DIPHENHYDRAMINE [Suspect]
  3. DIPHENHYDRAMINE [Suspect]
  4. METOCLOPRAMIDE [Suspect]
  5. PROMETHAZINE HYDROCHLORIDE [Suspect]
  6. MEPERIDINE [Suspect]
  7. NORTRIPTYLINE [Suspect]

REACTIONS (3)
  - Cardiac arrest [None]
  - Respiratory arrest [None]
  - Poisoning [None]
